FAERS Safety Report 17027925 (Version 1)
Quarter: 2019Q4

REPORT INFORMATION
  Report Type: Report from Study
  Country: AU (occurrence: AU)
  Receive Date: 20191113
  Receipt Date: 20191113
  Transmission Date: 20200122
  Serious: Yes (Death)
  Sender: FDA-Public Use
  Company Number: AU-TOLMAR, INC.-19AU000998

PATIENT
  Age: 71 Year
  Sex: Male

DRUGS (1)
  1. ELIGARD [Suspect]
     Active Substance: LEUPROLIDE ACETATE
     Indication: PROSTATE CANCER
     Dosage: 30 MG, Q4 MONTHS
     Route: 065
     Dates: end: 20190722

REACTIONS (1)
  - Death [Fatal]

NARRATIVE: CASE EVENT DATE: 201907
